FAERS Safety Report 5277093-5 (Version None)
Quarter: 2007Q1

REPORT INFORMATION
  Report Type: 
  Country: None (occurrence: None)
  Receive Date: 20070327
  Receipt Date: 20070322
  Transmission Date: 20070707
  Serious: Yes (Other)
  Sender: FDA-Public Use
  Company Number: BPC-ZN-07-173

PATIENT
  Age: 61 Year
  Sex: Male

DRUGS (1)
  1. ZYBAN [Suspect]
     Dosage: 150MG TWICE PER DAY
     Route: 048
     Dates: start: 20070227

REACTIONS (8)
  - AGITATION [None]
  - DEPRESSED MOOD [None]
  - DISTURBANCE IN ATTENTION [None]
  - FEELING ABNORMAL [None]
  - HYPERHIDROSIS [None]
  - LETHARGY [None]
  - NICOTINE DEPENDENCE [None]
  - PSYCHIATRIC SYMPTOM [None]
